FAERS Safety Report 5568376-X (Version None)
Quarter: 2007Q4

REPORT INFORMATION
  Report Type: 
  Country: None (occurrence: None)
  Receive Date: 20071130
  Receipt Date: 20070719
  Transmission Date: 20080405
  Serious: No
  Sender: FDA-Public Use
  Company Number: US200708005926

PATIENT
  Age: 53 Year
  Sex: Male
  Weight: 99.3 kg

DRUGS (3)
  1. BYETTA [Suspect]
     Dosage: D/F
     Dates: end: 20070628
  2. LANTUS [Concomitant]
  3. HUMALOG [Concomitant]

REACTIONS (1)
  - BLOOD GLUCOSE INCREASED [None]
